FAERS Safety Report 23982100 (Version 1)
Quarter: 2024Q2

REPORT INFORMATION
  Report Type: Report from Study
  Country: US (occurrence: US)
  Receive Date: 20240617
  Receipt Date: 20240617
  Transmission Date: 20240715
  Serious: No
  Sender: FDA-Public Use
  Company Number: US-BIOVITRUM-2024-US-008601

PATIENT
  Age: 61 Year
  Sex: Male

DRUGS (1)
  1. KINERET [Suspect]
     Active Substance: ANAKINRA
     Indication: Product used for unknown indication
     Dosage: 100 MG  QD
     Route: 058

REACTIONS (2)
  - Pyrexia [Unknown]
  - Rash [Unknown]
